FAERS Safety Report 5182957-7 (Version None)
Quarter: 2006Q4

REPORT INFORMATION
  Report Type: 
  Country: None (occurrence: None)
  Receive Date: 20061220
  Receipt Date: 20061013
  Transmission Date: 20070319
  Serious: Yes (Hospitalization, Other)
  Sender: FDA-Public Use
  Company Number: PHBS2006JP16118

PATIENT
  Age: 42 Year
  Sex: Female
  Weight: 55 kg

DRUGS (5)
  1. MAXIPIME [Concomitant]
     Indication: DENTAL CARIES
     Dosage: 2 G/DAY
     Route: 042
     Dates: start: 20061011, end: 20061018
  2. FERROUS SULFATE TAB [Concomitant]
     Indication: IRON DEFICIENCY ANAEMIA
     Dosage: 160 MG/DAY
     Route: 048
     Dates: start: 20060913, end: 20061114
  3. GLEEVEC [Suspect]
     Indication: CHRONIC MYELOID LEUKAEMIA
     Dosage: 300 MG/DAY
     Route: 048
     Dates: start: 20060830, end: 20060905
  4. GLEEVEC [Suspect]
     Dosage: 400 MG/DAY
     Route: 048
     Dates: start: 20060906, end: 20061004
  5. GLEEVEC [Suspect]
     Dosage: 200 MG/DAY
     Route: 048
     Dates: start: 20060824, end: 20060829

REACTIONS (5)
  - BLAST CELLS PRESENT [None]
  - DENTAL CARIES [None]
  - IRON DEFICIENCY ANAEMIA [None]
  - LEUKOPENIA [None]
  - MYELOFIBROSIS [None]
